FAERS Safety Report 10741765 (Version 1)
Quarter: 2015Q1

REPORT INFORMATION
  Report Type: Spontaneous
  Country: US (occurrence: None)
  Receive Date: 20150123
  Receipt Date: 20150123
  Transmission Date: 20150721
  Serious: Yes (Life-Threatening)
  Sender: FDA-Public Use
  Company Number: None

PATIENT
  Age: 60 Year
  Sex: Female
  Weight: 86.4 kg

DRUGS (5)
  1. RIVAROXABAN 20 MG JANSSEN [Suspect]
     Active Substance: RIVAROXABAN
     Indication: DEEP VEIN THROMBOSIS
     Dosage: 1 PILL
     Route: 048
     Dates: start: 20140813, end: 20141021
  2. CLOPIDOGREL [Concomitant]
     Active Substance: CLOPIDOGREL BISULFATE
  3. RIVAROXABAN 20 MG JANSSEN [Suspect]
     Active Substance: RIVAROXABAN
     Indication: MAY-THURNER SYNDROME
     Dosage: 1 PILL
     Route: 048
     Dates: start: 20140813, end: 20141021
  4. RIVAROXABAN 20 MG JANSSEN [Suspect]
     Active Substance: RIVAROXABAN
     Indication: VASCULAR STENT INSERTION
     Dosage: 1 PILL
     Route: 048
     Dates: start: 20140813, end: 20141021
  5. ASPIRIN. [Concomitant]
     Active Substance: ASPIRIN

REACTIONS (5)
  - Haemoglobin decreased [None]
  - Dizziness [None]
  - Hypotension [None]
  - Occult blood positive [None]
  - Lethargy [None]

NARRATIVE: CASE EVENT DATE: 20141022
